FAERS Safety Report 23946451 (Version 2)
Quarter: 2024Q2

REPORT INFORMATION
  Report Type: Spontaneous
  Country: US (occurrence: US)
  Receive Date: 20240606
  Receipt Date: 20240619
  Transmission Date: 20240715
  Serious: No
  Sender: FDA-Public Use
  Company Number: US-HALEON-2168215

PATIENT
  Sex: Male

DRUGS (1)
  1. TUMS EX [Suspect]
     Active Substance: CALCIUM CARBONATE
     Indication: Product used for unknown indication
     Dosage: EXPDATE:202712

REACTIONS (1)
  - Tooth fracture [Unknown]
